FAERS Safety Report 9217309 (Version 3)
Quarter: 2013Q2

REPORT INFORMATION
  Report Type: Spontaneous
  Country: US (occurrence: US)
  Receive Date: 20130408
  Receipt Date: 20130516
  Transmission Date: 20140414
  Serious: Yes (Life-Threatening)
  Sender: FDA-Public Use
  Company Number: US-ASTRAZENECA-2011SE19426

PATIENT
  Age: 41 Year
  Sex: Female

DRUGS (3)
  1. SEROQUEL XR [Suspect]
     Indication: BIPOLAR DISORDER
     Route: 048
  2. SEROQUEL XR [Suspect]
     Indication: BIPOLAR DISORDER
     Route: 048
     Dates: end: 201203
  3. LITHIUM [Suspect]
     Route: 065

REACTIONS (8)
  - Suicidal behaviour [Unknown]
  - Depression [Unknown]
  - Nasopharyngitis [Unknown]
  - Bipolar disorder [Unknown]
  - Memory impairment [Unknown]
  - Mood swings [Unknown]
  - Drug effect incomplete [Unknown]
  - Drug dose omission [Unknown]
